FAERS Safety Report 7842328 (Version 9)
Quarter: 2014Q2

REPORT INFORMATION
  Report Type: Spontaneous
  Country: US (occurrence: US)
  Receive Date: 20110304
  Receipt Date: 20140523
  Transmission Date: 20141212
  Serious: Yes (Other)
  Sender: FDA-Public Use
  Company Number: US-ASTRAZENECA-2011SE10450

PATIENT
  Age: 79 Year
  Sex: Male
  Weight: 79.4 kg

DRUGS (6)
  1. NEXIUM [Suspect]
     Indication: GASTROOESOPHAGEAL REFLUX DISEASE
     Route: 048
  2. NEXIUM [Suspect]
     Indication: GASTROOESOPHAGEAL REFLUX DISEASE
     Route: 048
  3. NEXIUM [Suspect]
     Indication: GASTROOESOPHAGEAL REFLUX DISEASE
     Route: 048
  4. NEXIUM [Suspect]
     Indication: GASTROOESOPHAGEAL REFLUX DISEASE
     Route: 048
  5. OMEPRAZOLE [Suspect]
     Indication: GASTROOESOPHAGEAL REFLUX DISEASE
     Route: 048
     Dates: start: 20140411
  6. OTHER MEDICATIONS [Suspect]
     Route: 065

REACTIONS (15)
  - Brain neoplasm [Unknown]
  - Road traffic accident [Unknown]
  - Gastrooesophageal reflux disease [Unknown]
  - Medical device complication [Unknown]
  - Diplopia [Unknown]
  - Amnesia [Unknown]
  - Adverse event [Not Recovered/Not Resolved]
  - Nausea [Unknown]
  - Malaise [Unknown]
  - Abdominal discomfort [Unknown]
  - Vomiting [Unknown]
  - Drug dose omission [Not Recovered/Not Resolved]
  - Drug dispensing error [Unknown]
  - Drug effect incomplete [Unknown]
  - Drug ineffective [Not Recovered/Not Resolved]
